FAERS Safety Report 5005024-1 (Version None)
Quarter: 2006Q2

REPORT INFORMATION
  Report Type: 
  Country: None (occurrence: None)
  Receive Date: 20060512
  Receipt Date: 20060504
  Transmission Date: 20061013
  Serious: Yes (Hospitalization)
  Sender: FDA-Public Use
  Company Number: 2006060445

PATIENT
  Sex: Male

DRUGS (1)
  1. AMLODIPINE [Suspect]
     Indication: ILL-DEFINED DISORDER
     Dosage: (10 MG), ORAL
     Route: 048

REACTIONS (5)
  - BLOOD AMYLASE INCREASED [None]
  - DIABETIC COMA [None]
  - DYSPEPSIA [None]
  - LIPASE INCREASED [None]
  - MALAISE [None]
